FAERS Safety Report 5629024-3 (Version None)
Quarter: 2008Q1

REPORT INFORMATION
  Report Type: 
  Country: None (occurrence: None)
  Receive Date: 20080214
  Receipt Date: 20080130
  Transmission Date: 20080703
  Serious: No
  Sender: FDA-Public Use
  Company Number: US022561

PATIENT
  Sex: Male

DRUGS (2)
  1. FENTORA [Suspect]
     Indication: NECK PAIN
     Dosage: 100 UG,BUCCAL,200 UG,BUCCAL
     Route: 002
  2. DURAGESIC-100 [Concomitant]

REACTIONS (2)
  - DRUG INEFFECTIVE [None]
  - PHARMACEUTICAL PRODUCT COMPLAINT [None]
